FAERS Safety Report 10091220 (Version 2)
Quarter: 2014Q2

REPORT INFORMATION
  Report Type: Spontaneous
  Country: US (occurrence: US)
  Receive Date: 20140421
  Receipt Date: 20140421
  Transmission Date: 20141212
  Serious: No
  Sender: FDA-Public Use
  Company Number: US-GILEAD-2012-0060973

PATIENT
  Sex: Female
  Weight: 52.61 kg

DRUGS (21)
  1. LETAIRIS [Suspect]
     Indication: PULMONARY HYPERTENSION
     Dosage: 5 MG, UNK
     Route: 048
     Dates: start: 20120817
  2. LETAIRIS [Suspect]
     Indication: SCLERODERMA
     Dosage: 2.5 UNK, UNK
     Route: 048
  3. FERROUS SULFATE [Concomitant]
  4. REMODULIN [Concomitant]
  5. POTASSIUM CHLORIDE [Concomitant]
  6. ZYLOPRIM [Concomitant]
  7. LASIX                              /00032601/ [Concomitant]
  8. DELTASONE                          /00016001/ [Concomitant]
  9. COLCRYS [Concomitant]
  10. SERTRALINE [Concomitant]
  11. ALDACTONE                          /00006201/ [Concomitant]
  12. NEXIUM                             /01479302/ [Concomitant]
  13. ATIVAN [Concomitant]
  14. SYNTHROID [Concomitant]
  15. IMODIUM [Concomitant]
  16. SODIUM CHLORIDE [Concomitant]
  17. GEMFIBROZIL [Concomitant]
  18. VITAMIN B-12 [Concomitant]
  19. ATARAX                             /00058401/ [Concomitant]
  20. TYLENOL                            /00020001/ [Concomitant]
  21. REVATIO [Concomitant]

REACTIONS (5)
  - Vision blurred [Recovering/Resolving]
  - Headache [Recovering/Resolving]
  - Flushing [Unknown]
  - Nausea [Unknown]
  - Wrong technique in drug usage process [Unknown]
